FAERS Safety Report 7539120-1 (Version None)
Quarter: 2011Q2

REPORT INFORMATION
  Report Type: 
  Country: None (occurrence: None)
  Receive Date: 20110610
  Receipt Date: 20010709
  Transmission Date: 20111010
  Serious: Yes (Other)
  Sender: FDA-Public Use
  Company Number: PHBS2001CA04972

PATIENT
  Sex: Female
  Weight: 62.132 kg

DRUGS (1)
  1. CLOZAPINE [Suspect]
     Indication: SCHIZOPHRENIA
     Dosage: 200 MG, QD
     Route: 048
     Dates: start: 19931203

REACTIONS (4)
  - PARANOIA [None]
  - INSOMNIA [None]
  - BREAST CANCER IN SITU [None]
  - TEARFULNESS [None]
